FAERS Safety Report 23359044 (Version 1)
Quarter: 2024Q1

REPORT INFORMATION
  Report Type: Spontaneous
  Country: US (occurrence: US)
  Receive Date: 20240102
  Receipt Date: 20240102
  Transmission Date: 20240410
  Serious: Yes (Other)
  Sender: FDA-Public Use
  Company Number: US-PPDUS-2023ST005327

PATIENT
  Age: 37 Year
  Sex: Female

DRUGS (1)
  1. ORSERDU [Suspect]
     Active Substance: ELACESTRANT
     Indication: Product used for unknown indication
     Dosage: 345MG ONCE DAILY
     Route: 048
     Dates: start: 20231130

REACTIONS (5)
  - Ascites [Unknown]
  - Hepatic failure [Unknown]
  - Hospice care [Unknown]
  - Malaise [Unknown]
  - Hepatic enzyme increased [Unknown]
